FAERS Safety Report 9219845 (Version 1)
Quarter: 2013Q2

REPORT INFORMATION
  Report Type: Spontaneous
  Country: BR (occurrence: BR)
  Receive Date: 20130409
  Receipt Date: 20130409
  Transmission Date: 20140414
  Serious: Yes (Other)
  Sender: FDA-Public Use
  Company Number: PHHY2013BR033581

PATIENT
  Age: 83 Year
  Sex: Female

DRUGS (8)
  1. APRESOLINE [Suspect]
     Dosage: 02 DF, A DAY (25 MG)
     Route: 048
  2. APRESOLINE [Suspect]
     Dosage: 50 MG, UNK
  3. APRESOLINE [Suspect]
     Dosage: 4 DF, UNK
  4. DIOVAN [Suspect]
     Dosage: 2 DF, A DAY (80 MG)
     Route: 048
  5. FLUOXETINE [Suspect]
     Indication: DEPRESSION
     Dosage: 20 MG, UNK
  6. SIMVASTATIN [Suspect]
     Indication: BLOOD CHOLESTEROL INCREASED
     Dosage: 20 MG, UNK
  7. PANTOPRAZOLE [Suspect]
     Indication: GASTRITIS
     Dosage: 150 MG, UNK
  8. ANTAK [Suspect]
     Indication: GASTRITIS
     Dosage: 3 DF, DAILY
     Route: 048

REACTIONS (7)
  - Blood cholesterol increased [Unknown]
  - Gastritis [Unknown]
  - Vision blurred [Recovered/Resolved]
  - Diarrhoea [Recovered/Resolved]
  - Depression [Unknown]
  - Drug intolerance [Unknown]
  - Incorrect dose administered [Unknown]
